FAERS Safety Report 9166125 (Version 1)
Quarter: 2013Q1

REPORT INFORMATION
  Report Type: Spontaneous
  Country: BR (occurrence: BR)
  Receive Date: 20130315
  Receipt Date: 20130315
  Transmission Date: 20140127
  Serious: Yes (Death, Other)
  Sender: FDA-Public Use
  Company Number: PHHY2013BR025029

PATIENT
  Age: 6 Month
  Sex: Male

DRUGS (2)
  1. HYDRALAZINE [Suspect]
     Indication: HYPERTENSION
     Dosage: UNK UKN, UNK
  2. SODIUM NITROPRUSSIDE [Suspect]
     Indication: HYPERTENSION
     Dosage: UNK UKN, UNK

REACTIONS (4)
  - Orchitis [Fatal]
  - Gastrointestinal necrosis [Fatal]
  - Intestinal perforation [Fatal]
  - Drug ineffective [Not Recovered/Not Resolved]
